FAERS Safety Report 10962401 (Version 5)
Quarter: 2018Q3

REPORT INFORMATION
  Report Type: Spontaneous
  Country: JP (occurrence: JP)
  Receive Date: 20150327
  Receipt Date: 20180928
  Transmission Date: 20181010
  Serious: Yes (Other)
  Sender: FDA-Public Use
  Company Number: JP-ELI_LILLY_AND_COMPANY-JP201502007873

PATIENT
  Age: 53 Year
  Sex: Female

DRUGS (9)
  1. MINRIN MELT [Concomitant]
     Active Substance: DESMOPRESSIN ACETATE
     Indication: HYPOPITUITARISM
     Dosage: 240 UG, QD
     Route: 048
     Dates: start: 201406
  2. HUMATROPE [Suspect]
     Active Substance: SOMATROPIN
     Indication: HYPOPITUITARISM
     Dosage: 0.2 MG, 4/W
     Route: 058
     Dates: start: 20141120
  3. EDIROL [Concomitant]
     Active Substance: ELDECALCITOL
     Indication: OSTEOPOROSIS
     Dosage: 0.75 UG, QD
     Route: 048
     Dates: start: 201408
  4. MOHRUS [Concomitant]
     Active Substance: KETOPROFEN
     Indication: MYALGIA
     Dosage: 20 MG, QD
     Route: 062
     Dates: start: 201412
  5. HUMATROPE [Suspect]
     Active Substance: SOMATROPIN
     Dosage: UNK
     Route: 058
     Dates: end: 2015
  6. BROTIZOLAM [Concomitant]
     Active Substance: BROTIZOLAM
     Indication: INSOMNIA
     Dosage: 0.25 MG, QD
     Route: 048
     Dates: start: 201412
  7. THYRADIN S [Concomitant]
     Active Substance: LEVOTHYROXINE SODIUM
     Indication: HYPOPITUITARISM
     Dosage: 100 UG, QD
     Route: 048
     Dates: start: 201306
  8. CORTRIL [Concomitant]
     Active Substance: HYDROCORTISONE
     Indication: HYPOPITUITARISM
     Dosage: 30 MG, QD
     Route: 048
     Dates: start: 201303
  9. NEXIUM [Concomitant]
     Active Substance: ESOMEPRAZOLE MAGNESIUM
     Indication: GASTRIC ULCER
     Dosage: 20 MG, QD
     Route: 048
     Dates: start: 201406

REACTIONS (6)
  - Blood cholesterol increased [Not Recovered/Not Resolved]
  - Stress [Unknown]
  - Liver function test increased [Not Recovered/Not Resolved]
  - Hyperphagia [Unknown]
  - Weight increased [Unknown]
  - Diabetic ketosis [Recovered/Resolved with Sequelae]

NARRATIVE: CASE EVENT DATE: 20150114
